FAERS Safety Report 7603959-4 (Version None)
Quarter: 2011Q3

REPORT INFORMATION
  Report Type: 
  Country: None (occurrence: None)
  Receive Date: 20110712
  Receipt Date: 20110629
  Transmission Date: 20111222
  Serious: Yes (Hospitalization)
  Sender: FDA-Public Use
  Company Number: BE-ROCHE-787874

PATIENT
  Age: 42 Year
  Sex: Male
  Weight: 69.7 kg

DRUGS (7)
  1. BOSUTINIB [Suspect]
     Indication: BILE DUCT CANCER
     Route: 048
     Dates: start: 20110212
  2. OMEPRAZOLE [Concomitant]
     Dates: start: 20070101
  3. CAPECITABINE [Suspect]
     Indication: BILE DUCT CANCER
     Dosage: DOSAGE INCREASED FROM 750MG/M2 TO 1500 MG/M2
     Route: 048
     Dates: start: 20100212
  4. MOVIPREP [Concomitant]
     Indication: CONSTIPATION
     Dates: start: 20100218
  5. PRIMPERAN TAB [Concomitant]
     Indication: NAUSEA
     Dates: start: 20100204
  6. MS CONTIN [Concomitant]
     Dates: start: 20100107, end: 20100219
  7. IBRUPROFEN [Concomitant]
     Dates: start: 20100107, end: 20100219

REACTIONS (1)
  - RENAL IMPAIRMENT [None]
